FAERS Safety Report 6588036-6 (Version None)
Quarter: 2010Q1

REPORT INFORMATION
  Report Type: 
  Country: None (occurrence: None)
  Receive Date: 20100217
  Receipt Date: 20100217
  Transmission Date: 20100710
  Serious: No
  Sender: FDA-Public Use
  Company Number: None

PATIENT
  Age: 15 Year
  Sex: Male
  Weight: 64.4108 kg

DRUGS (1)
  1. TYLENOL-500 [Suspect]
     Dosage: 2 CAPS 650 MG EACH IN 12 HOURS TOOK 2 DOSES ORAL
     Route: 048

REACTIONS (5)
  - ABDOMINAL PAIN [None]
  - DIZZINESS [None]
  - FATIGUE [None]
  - FLATULENCE [None]
  - NAUSEA [None]
